FAERS Safety Report 21740507 (Version 1)
Quarter: 2022Q4

REPORT INFORMATION
  Report Type: Report from Study
  Country: BR (occurrence: BR)
  Receive Date: 20221216
  Receipt Date: 20221216
  Transmission Date: 20230113
  Serious: Yes (Other)
  Sender: FDA-Public Use
  Company Number: BR-JNJFOC-20221150573

PATIENT

DRUGS (4)
  1. STELARA [Suspect]
     Active Substance: USTEKINUMAB
     Indication: Crohn^s disease
     Route: 058
  2. STELARA [Suspect]
     Active Substance: USTEKINUMAB
     Route: 058
  3. METHOTREXATE [Concomitant]
     Active Substance: METHOTREXATE
  4. AZATHIOPRINE [Concomitant]
     Active Substance: AZATHIOPRINE

REACTIONS (13)
  - Anal abscess [Unknown]
  - Cytomegalovirus colitis [Unknown]
  - Clostridium difficile colitis [Unknown]
  - Nephrolithiasis [Unknown]
  - Intestinal obstruction [Unknown]
  - Upper respiratory tract infection [Unknown]
  - COVID-19 [Unknown]
  - Herpes zoster [Unknown]
  - Skin reaction [Unknown]
  - Infusion related reaction [Unknown]
  - Asthenia [Unknown]
  - Headache [Unknown]
  - Therapeutic product effect decreased [Unknown]
